FAERS Safety Report 8440735-7 (Version None)
Quarter: 2012Q2

REPORT INFORMATION
  Report Type: 
  Country: None (occurrence: None)
  Receive Date: 20120615
  Receipt Date: 20120607
  Transmission Date: 20120825
  Serious: Yes (Other)
  Sender: FDA-Public Use
  Company Number: CA-ABBOTT-12P-028-0943913-00

PATIENT
  Sex: Female
  Weight: 98.972 kg

DRUGS (6)
  1. HUMIRA [Suspect]
  2. MINERVA [Concomitant]
     Indication: CONTRACEPTION
     Route: 015
     Dates: start: 20070115
  3. HUMIRA [Suspect]
     Indication: CROHN'S DISEASE
     Route: 058
     Dates: start: 20091020, end: 20091020
  4. ELETRIPTAN HYDROBROMIDE [Concomitant]
     Indication: MIGRAINE
  5. HUMIRA [Suspect]
     Route: 058
  6. EXTRA STRENGTH TYLENOL [Concomitant]
     Indication: MIGRAINE

REACTIONS (1)
  - BENIGN INTRACRANIAL HYPERTENSION [None]
